FAERS Safety Report 13153711 (Version 2)
Quarter: 2017Q1

REPORT INFORMATION
  Report Type: Spontaneous
  Country: FR (occurrence: FR)
  Receive Date: 20170126
  Receipt Date: 20170130
  Transmission Date: 20170428
  Serious: Yes (Other)
  Sender: FDA-Public Use
  Company Number: FR-CELGENEUS-FRA-2017013354

PATIENT
  Age: 55 Year
  Sex: Female

DRUGS (2)
  1. SALAZOPYRINE [Concomitant]
     Active Substance: SULFASALAZINE
     Indication: RHEUMATOID ARTHRITIS
     Route: 065
  2. OTEZLA [Suspect]
     Active Substance: APREMILAST
     Indication: PRODUCT USED FOR UNKNOWN INDICATION
     Route: 048

REACTIONS (5)
  - Gastrooesophageal reflux disease [Unknown]
  - Nightmare [Unknown]
  - Abdominal pain [Unknown]
  - Diarrhoea [Unknown]
  - Enterocolitis haemorrhagic [Unknown]
